FAERS Safety Report 23428148 (Version 2)
Quarter: 2024Q1

REPORT INFORMATION
  Report Type: Spontaneous
  Country: CA (occurrence: CA)
  Receive Date: 20240122
  Receipt Date: 20240131
  Transmission Date: 20240409
  Serious: Yes (Other)
  Sender: FDA-Public Use
  Company Number: CA-PFIZER INC-202200629265

PATIENT
  Age: 35 Year
  Sex: Male

DRUGS (6)
  1. ABRILADA [Suspect]
     Active Substance: ADALIMUMAB-AFZB
     Indication: Crohn^s disease
     Dosage: 40 MG EVERY 10 DAYS
     Route: 058
  2. ABRILADA [Suspect]
     Active Substance: ADALIMUMAB-AFZB
     Dosage: 40 MG EVERY 10 DAYS
     Route: 058
     Dates: start: 20220509
  3. ABRILADA [Suspect]
     Active Substance: ADALIMUMAB-AFZB
     Dosage: 40 MG EVERY 10 DAYS
     Route: 058
     Dates: start: 20221212
  4. ABRILADA [Suspect]
     Active Substance: ADALIMUMAB-AFZB
     Dosage: 40 MG EVERY 10 DAYS (PREFILLED SYRINGE)
     Route: 058
  5. ABRILADA [Suspect]
     Active Substance: ADALIMUMAB-AFZB
     Dosage: 40 MG  FREQUENCY 7 DAYS
     Route: 058
  6. ABRILADA [Suspect]
     Active Substance: ADALIMUMAB-AFZB
     Dosage: 40 MG, WEEKLY (40 MG SC (SUBCUTANEOUS) WEEKLY FOR 2 MONTHS, THEN REDUCE TO 40 MG SC (SUBCUTANEOUS) E
     Route: 058

REACTIONS (2)
  - Ileal ulcer [Unknown]
  - Off label use [Unknown]
